FAERS Safety Report 19159852 (Version 2)
Quarter: 2021Q2

REPORT INFORMATION
  Report Type: Spontaneous
  Country: DE (occurrence: DE)
  Receive Date: 20210420
  Receipt Date: 20210427
  Transmission Date: 20210717
  Serious: Yes (Other)
  Sender: FDA-Public Use
  Company Number: DE-BAUSCH-BL-2021-013164

PATIENT
  Sex: Male

DRUGS (4)
  1. DEXA EDO [Suspect]
     Active Substance: DEXAMETHASONE SODIUM PHOSPHATE
     Indication: EYE INFLAMMATION
     Dosage: STARTED 2 OR 3 YEARS AGO , ? DAILY IN THE MORNING
     Route: 065
     Dates: end: 20210412
  2. COVID?19 VACCINE NOS. [Suspect]
     Active Substance: COVID-19 VACCINE NOS
     Indication: COVID-19 PROPHYLAXIS
     Dosage: FIRST DOSE
     Route: 065
  3. DEXA EDO [Suspect]
     Active Substance: DEXAMETHASONE SODIUM PHOSPHATE
     Indication: POSTOPERATIVE CARE
     Route: 065
     Dates: start: 20210417
  4. COVID?19 VACCINE NOS. [Suspect]
     Active Substance: COVID-19 VACCINE NOS
     Dosage: SECOND DOSE
     Route: 065
     Dates: start: 20210315, end: 20210315

REACTIONS (3)
  - Diarrhoea [Not Recovered/Not Resolved]
  - Renal disorder [Unknown]
  - Arrhythmia [Recovered/Resolved]

NARRATIVE: CASE EVENT DATE: 2018
